FAERS Safety Report 6053327-4 (Version None)
Quarter: 2009Q1

REPORT INFORMATION
  Report Type: 
  Country: None (occurrence: None)
  Receive Date: 20090127
  Receipt Date: 20090119
  Transmission Date: 20090719
  Serious: Yes (Death, Hospitalization)
  Sender: FDA-Public Use
  Company Number: B0549260A

PATIENT
  Age: 66 Year
  Sex: Female

DRUGS (4)
  1. AUGMENTIN '125' [Suspect]
     Route: 048
     Dates: start: 20081104, end: 20081112
  2. RIMIFON [Suspect]
     Route: 048
     Dates: start: 20081003
  3. RIMACTANE [Suspect]
     Route: 048
     Dates: start: 20081003
  4. PIRILENE [Suspect]
     Route: 048
     Dates: start: 20081003

REACTIONS (6)
  - BILE DUCT CANCER [None]
  - CHOLANGITIS [None]
  - CHOLESTASIS [None]
  - HEPATIC FIBROSIS [None]
  - HEPATITIS CHOLESTATIC [None]
  - JAUNDICE [None]
